FAERS Safety Report 6287306-9 (Version None)
Quarter: 2009Q3

REPORT INFORMATION
  Report Type: 
  Country: None (occurrence: None)
  Receive Date: 20090728
  Receipt Date: 20090716
  Transmission Date: 20100115
  Serious: Yes (Other)
  Sender: FDA-Public Use
  Company Number: US-PFIZER INC-2009239911

PATIENT
  Age: 73 Year

DRUGS (2)
  1. XALATAN [Suspect]
  2. TRAVOPROST [Concomitant]
     Dosage: UNK

REACTIONS (5)
  - BLINDNESS [None]
  - EYE PAIN [None]
  - EYE PRURITUS [None]
  - FOREIGN BODY IN EYE [None]
  - VISION BLURRED [None]
